FAERS Safety Report 7994389-4 (Version None)
Quarter: 2011Q4

REPORT INFORMATION
  Report Type: 
  Country: None (occurrence: None)
  Receive Date: 20111217
  Receipt Date: 20111217
  Transmission Date: 20120403
  Serious: Yes (Other)
  Sender: FDA-Public Use
  Company Number: None

PATIENT
  Sex: Male
  Weight: 92.9874 kg

DRUGS (2)
  1. ULORIC [Suspect]
     Indication: GOUT
     Dosage: 1 TABLET DAILY
     Dates: start: 20110918, end: 20111102
  2. ULORIC [Suspect]
     Indication: BLOOD URIC ACID INCREASED
     Dosage: 1 TABLET DAILY
     Dates: start: 20110918, end: 20111102

REACTIONS (3)
  - SWELLING [None]
  - INFLAMMATION [None]
  - ERYTHEMA [None]
